FAERS Safety Report 8025568-8 (Version None)
Quarter: 2012Q1

REPORT INFORMATION
  Report Type: 
  Country: None (occurrence: None)
  Receive Date: 20120105
  Receipt Date: 20120104
  Transmission Date: 20120608
  Serious: Yes (Hospitalization, Other)
  Sender: FDA-Public Use
  Company Number: US-AMGEN-USASP2011038991

PATIENT
  Age: 54 Year
  Sex: Female

DRUGS (5)
  1. ENBREL [Suspect]
     Indication: RHEUMATOID ARTHRITIS
     Dosage: 25 MG, 2 TIMES/WK
     Dates: start: 20030901
  2. FELDENE [Concomitant]
  3. WATER [Concomitant]
  4. METHYLPREDNISOLONE [Concomitant]
  5. ANTIHYPERTENSIVES [Concomitant]
     Indication: BLOOD PRESSURE

REACTIONS (22)
  - OSTEOPOROSIS [None]
  - SKIN DISCOLOURATION [None]
  - SKIN DISORDER [None]
  - TREATMENT NONCOMPLIANCE [None]
  - BLISTER [None]
  - ARTHROPATHY [None]
  - OPEN WOUND [None]
  - CARTILAGE ATROPHY [None]
  - OEDEMA PERIPHERAL [None]
  - FALL [None]
  - LIMB INJURY [None]
  - MALAISE [None]
  - SYNCOPE [None]
  - SKIN ULCER [None]
  - TENDON INJURY [None]
  - HYPOTENSION [None]
  - SPINAL COLUMN STENOSIS [None]
  - HYPOTHYROIDISM [None]
  - SWELLING [None]
  - SKIN EXFOLIATION [None]
  - WEIGHT DECREASED [None]
  - MENTAL DISORDER [None]
